FAERS Safety Report 24147448 (Version 2)
Quarter: 2024Q3

REPORT INFORMATION
  Report Type: Spontaneous
  Country: AU (occurrence: AU)
  Receive Date: 20240729
  Receipt Date: 20240913
  Transmission Date: 20241017
  Serious: Yes (Other)
  Sender: ASCEND
  Company Number: AU-Ascend Therapeutics US, LLC-2159719

PATIENT
  Sex: Female

DRUGS (3)
  1. ESTROGEL [Suspect]
     Active Substance: ESTRADIOL
     Indication: Hormone replacement therapy
     Dates: start: 202305
  2. ESTROGEL [Suspect]
     Active Substance: ESTRADIOL
     Dates: start: 202305
  3. PROMETRIUM [Suspect]
     Active Substance: PROGESTERONE
     Dates: start: 202305

REACTIONS (2)
  - Uterine haemorrhage [Unknown]
  - Uterine leiomyoma [Unknown]
